FAERS Safety Report 6756152-1 (Version None)
Quarter: 2010Q2

REPORT INFORMATION
  Report Type: 
  Country: None (occurrence: None)
  Receive Date: 20100604
  Receipt Date: 20100601
  Transmission Date: 20101027
  Serious: Yes (Other)
  Sender: FDA-Public Use
  Company Number: CHPA2010US09298

PATIENT
  Age: 79 Year
  Sex: Female

DRUGS (3)
  1. PREVACID 24 HR [Suspect]
     Indication: DYSPEPSIA
     Dosage: 15 MG, QD
     Route: 048
  2. PREVACID 24 HR [Suspect]
     Dosage: 15 MG, QD
     Route: 048
  3. PREVACID 24 HR [Suspect]
     Dosage: 15 MG, QD
     Route: 048

REACTIONS (6)
  - FALL [None]
  - INAPPROPRIATE SCHEDULE OF DRUG ADMINISTRATION [None]
  - INCORRECT DRUG ADMINISTRATION DURATION [None]
  - INTENTIONAL DRUG MISUSE [None]
  - LOWER LIMB FRACTURE [None]
  - OFF LABEL USE [None]
